FAERS Safety Report 25796778 (Version 1)
Quarter: 2025Q3

REPORT INFORMATION
  Report Type: Spontaneous
  Country: US (occurrence: US)
  Receive Date: 20250912
  Receipt Date: 20250912
  Transmission Date: 20251020
  Serious: No
  Sender: ANI
  Company Number: US-ANIPHARMA-2025-US-018759

PATIENT
  Age: 72 Year
  Sex: Male

DRUGS (2)
  1. CORTICOTROPIN [Suspect]
     Active Substance: CORTICOTROPIN
     Indication: Nephrotic syndrome
     Route: 058
     Dates: start: 202412
  2. ENBREL [Suspect]
     Active Substance: ETANERCEPT
     Dates: start: 20250318

REACTIONS (1)
  - Skin discolouration [Unknown]
